FAERS Safety Report 9097559 (Version 2)
Quarter: 2013Q1

REPORT INFORMATION
  Report Type: Spontaneous
  Country: US (occurrence: US)
  Receive Date: 20130212
  Receipt Date: 20130312
  Transmission Date: 20140127
  Serious: No
  Sender: FDA-Public Use
  Company Number: US-PFIZER INC-2013051534

PATIENT
  Age: 56 Year
  Sex: Male
  Weight: 104 kg

DRUGS (2)
  1. FLECTOR [Suspect]
     Indication: INTERVERTEBRAL DISC DEGENERATION
     Dosage: UNK, 2X/DAY
     Dates: start: 201301, end: 201301
  2. FLECTOR [Suspect]
     Indication: PAIN IN EXTREMITY

REACTIONS (1)
  - Drug ineffective [Unknown]
